FAERS Safety Report 16306909 (Version 3)
Quarter: 2019Q3

REPORT INFORMATION
  Report Type: Report from Study
  Country: CA (occurrence: CA)
  Receive Date: 20190513
  Receipt Date: 20190916
  Transmission Date: 20191004
  Serious: Yes (Hospitalization)
  Sender: FDA-Public Use
  Company Number: CA-ACTELION-A-NJ2019-190056

PATIENT
  Age: 40 Year
  Sex: Male

DRUGS (5)
  1. TRACLEER [Concomitant]
     Active Substance: BOSENTAN
     Dosage: UNK
  2. SILDENAFIL. [Concomitant]
     Active Substance: SILDENAFIL
     Dosage: UNK
  3. CARIPUL [Suspect]
     Active Substance: EPOPROSTENOL
     Indication: PULMONARY ARTERIAL HYPERTENSION
     Dosage: 4.5 MG, QD
     Route: 042
     Dates: start: 20190412
  4. POTASSIUM [Concomitant]
     Active Substance: POTASSIUM
  5. VIAGRA [Concomitant]
     Active Substance: SILDENAFIL CITRATE

REACTIONS (6)
  - Hospitalisation [Unknown]
  - Device malfunction [Recovered/Resolved]
  - Thrombosis in device [Recovered/Resolved]
  - Pain in jaw [Unknown]
  - Bacteraemia [Recovered/Resolved]
  - Dyspnoea exertional [Unknown]

NARRATIVE: CASE EVENT DATE: 20190419
